FAERS Safety Report 14637941 (Version 1)
Quarter: 2018Q1

REPORT INFORMATION
  Report Type: Spontaneous
  Country: US (occurrence: US)
  Receive Date: 20180313
  Receipt Date: 20180313
  Transmission Date: 20180509
  Serious: Yes (Disabling, Other)
  Sender: FDA-Public Use
  Company Number: None

PATIENT
  Age: 27 Year
  Sex: Female
  Weight: 63 kg

DRUGS (4)
  1. SOLCO BUPROPION SR 200MG [Suspect]
     Active Substance: BUPROPION HYDROCHLORIDE
     Indication: MAJOR DEPRESSION
     Dosage: ?          QUANTITY:1 TABLET(S);?
     Route: 048
     Dates: start: 20180115
  2. KLOOPIN GENERIC [Concomitant]
  3. GENERIC WELLBUTRIN [Concomitant]
     Active Substance: BUPROPION HYDROCHLORIDE
  4. ZOLOFT [Concomitant]
     Active Substance: SERTRALINE HYDROCHLORIDE

REACTIONS (9)
  - Feeling abnormal [None]
  - Loss of personal independence in daily activities [None]
  - Drug resistance [None]
  - Product substitution issue [None]
  - Job dissatisfaction [None]
  - Photophobia [None]
  - Nausea [None]
  - Headache [None]
  - Depression [None]

NARRATIVE: CASE EVENT DATE: 20180115
